FAERS Safety Report 24790209 (Version 1)
Quarter: 2024Q4

REPORT INFORMATION
  Report Type: Spontaneous
  Country: FR (occurrence: FR)
  Receive Date: 20241230
  Receipt Date: 20241230
  Transmission Date: 20250114
  Serious: Yes (Other)
  Sender: AMGEN
  Company Number: FR-AMGEN-FRASP2024251828

PATIENT
  Age: 62 Year
  Sex: Female
  Weight: 50 kg

DRUGS (1)
  1. PROLIA [Suspect]
     Active Substance: DENOSUMAB
     Indication: Osteoporosis
     Dosage: 60 MILLIGRAM
     Route: 065

REACTIONS (11)
  - Spinal fracture [Unknown]
  - Neoplasm malignant [Unknown]
  - Conjunctivitis allergic [Unknown]
  - Cardiac disorder [Unknown]
  - Ear pain [Unknown]
  - Oral discomfort [Unknown]
  - Hypoaesthesia [Unknown]
  - Arthralgia [Unknown]
  - Paraesthesia [Unknown]
  - Nasopharyngitis [Unknown]
  - Rash [Unknown]

NARRATIVE: CASE EVENT DATE: 20240101
